FAERS Safety Report 10746635 (Version 3)
Quarter: 2015Q1

REPORT INFORMATION
  Report Type: Spontaneous
  Country: BR (occurrence: BR)
  Receive Date: 20150128
  Receipt Date: 20150320
  Transmission Date: 20150721
  Serious: Yes (Hospitalization)
  Sender: FDA-Public Use
  Company Number: BR-DSJP-DSU-2015-102801

PATIENT

DRUGS (4)
  1. ROSUVASTATIN /01588602/ [Suspect]
     Active Substance: ROSUVASTATIN CALCIUM
     Indication: BLOOD CHOLESTEROL
     Dosage: UNK
     Dates: start: 20140311
  2. PLENANCE [Concomitant]
     Active Substance: ROSUVASTATIN
     Indication: BLOOD CHOLESTEROL
     Dosage: 1 DF, QD
     Route: 048
     Dates: start: 201403
  3. LIPITOR [Suspect]
     Active Substance: ATORVASTATIN CALCIUM
     Indication: BLOOD PRESSURE
     Dosage: 40 MG, QD
     Route: 048
     Dates: start: 20090130
  4. OLMETEC ANLO [Suspect]
     Active Substance: AMLODIPINE BESYLATE\OLMESARTAN MEDOXOMIL
     Indication: BLOOD PRESSURE
     Dosage: 40/5 MG QD
     Route: 048
     Dates: start: 20130410, end: 20150211

REACTIONS (7)
  - Lethargy [Not Recovered/Not Resolved]
  - Coordination abnormal [Unknown]
  - Blood triglycerides increased [Recovered/Resolved]
  - Dysstasia [None]
  - Hypoaesthesia [Not Recovered/Not Resolved]
  - Nerve root compression [Recovered/Resolved]
  - Arthralgia [Recovered/Resolved]

NARRATIVE: CASE EVENT DATE: 201404
